FAERS Safety Report 19910761 (Version 2)
Quarter: 2021Q4

REPORT INFORMATION
  Report Type: Spontaneous
  Country: US (occurrence: None)
  Receive Date: 20211004
  Receipt Date: 20211116
  Transmission Date: 20220304
  Serious: No
  Sender: FDA-Public Use
  Company Number: US-MERCK HEALTHCARE KGAA-9269472

PATIENT
  Age: 35 Year
  Sex: Female

DRUGS (4)
  1. REBIF [Suspect]
     Active Substance: INTERFERON BETA-1A
     Indication: Multiple sclerosis
     Dosage: REBIF REBI AUTOINJ TITR PACK
     Route: 058
     Dates: start: 20210910
  2. REBIF [Suspect]
     Active Substance: INTERFERON BETA-1A
     Dosage: REBIF REBI AUTOINJ TITR PACK
     Route: 058
     Dates: start: 202109
  3. REBIF [Suspect]
     Active Substance: INTERFERON BETA-1A
     Route: 058
     Dates: start: 202109
  4. REBIF [Suspect]
     Active Substance: INTERFERON BETA-1A
     Route: 058
     Dates: start: 20210913

REACTIONS (10)
  - Injection site erythema [Unknown]
  - Injection site bruising [Not Recovered/Not Resolved]
  - Injection site pruritus [Unknown]
  - Hyperhidrosis [Unknown]
  - Injection site reaction [Recovered/Resolved]
  - Limb discomfort [Unknown]
  - Feeling cold [Unknown]
  - Muscular weakness [Recovered/Resolved]
  - Tearfulness [Unknown]
  - Depression [Unknown]

NARRATIVE: CASE EVENT DATE: 20210101
